FAERS Safety Report 9739491 (Version 4)
Quarter: 2014Q1

REPORT INFORMATION
  Report Type: Other
  Country: IT (occurrence: IT)
  Receive Date: 20131209
  Receipt Date: 20140121
  Transmission Date: 20141002
  Serious: Yes (Hospitalization)
  Sender: FDA-Public Use
  Company Number: IT-TAKEDA-2013TEU002998

PATIENT
  Age: 38 Year
  Sex: Male

DRUGS (2)
  1. LANSOPRAZOLE [Suspect]
     Indication: ABDOMINAL PAIN UPPER
     Dosage: UNK
     Dates: start: 20131004, end: 20131012
  2. GAVISCON                           /00237601/ [Concomitant]
     Indication: ABDOMINAL PAIN UPPER
     Dosage: 500 MG/10 ML + 267 MG/10 ML
     Route: 048

REACTIONS (1)
  - Urticaria [Recovering/Resolving]
